FAERS Safety Report 17558356 (Version 1)
Quarter: 2020Q1

REPORT INFORMATION
  Report Type: Spontaneous
  Country: US (occurrence: US)
  Receive Date: 20200318
  Receipt Date: 20200318
  Transmission Date: 20200409
  Serious: Yes (Death)
  Sender: FDA-Public Use
  Company Number: US-AKRON, INC.-2081762

PATIENT
  Sex: Female

DRUGS (1)
  1. AK-FLUOR [Suspect]
     Active Substance: FLUORESCEIN SODIUM
     Route: 042

REACTIONS (1)
  - Death [Fatal]
